FAERS Safety Report 9213776 (Version 1)
Quarter: 2013Q2

REPORT INFORMATION
  Report Type: Spontaneous
  Country: NL (occurrence: NL)
  Receive Date: 20130405
  Receipt Date: 20130405
  Transmission Date: 20140414
  Serious: Yes (Hospitalization)
  Sender: FDA-Public Use
  Company Number: NL-AMGEN-NLDSP2013023878

PATIENT
  Age: 61 Year
  Sex: Male

DRUGS (4)
  1. ENBREL [Suspect]
     Indication: RHEUMATOID ARTHRITIS
     Dosage: 50 MG, WEEKLY
     Dates: start: 20121004
  2. ARAVA [Concomitant]
     Dosage: UNK
  3. PLAQUENIL                          /00072602/ [Concomitant]
     Dosage: UNK
  4. PREDNISON [Concomitant]
     Dosage: UNK

REACTIONS (4)
  - Knee operation [Recovering/Resolving]
  - Medical device site reaction [Recovering/Resolving]
  - Bacterial infection [Recovering/Resolving]
  - Fungal infection [Recovering/Resolving]
